FAERS Safety Report 8475091-1 (Version None)
Quarter: 2012Q2

REPORT INFORMATION
  Report Type: 
  Country: None (occurrence: None)
  Receive Date: 20120628
  Receipt Date: 20120619
  Transmission Date: 20120825
  Serious: Yes (Hospitalization)
  Sender: FDA-Public Use
  Company Number: BR-ASTRAZENECA-2012SE34559

PATIENT
  Age: 78 Year
  Sex: Female

DRUGS (4)
  1. NEXIUM [Suspect]
     Indication: REFLUX GASTRITIS
     Route: 048
  2. NEXIUM [Suspect]
     Route: 048
  3. UNSPECIFIED MEDICATIONS [Concomitant]
  4. CARVEDILOL [Concomitant]
     Route: 048

REACTIONS (1)
  - CARDIAC FAILURE [None]
